FAERS Safety Report 17722603 (Version 10)
Quarter: 2020Q4

REPORT INFORMATION
  Report Type: Spontaneous
  Country: US (occurrence: US)
  Receive Date: 20200429
  Receipt Date: 20201221
  Transmission Date: 20210113
  Serious: Yes (Other)
  Sender: FDA-Public Use
  Company Number: US-PFIZER INC-2020163397

PATIENT
  Age: 62 Year
  Sex: Female
  Weight: 49.89 kg

DRUGS (3)
  1. SERTRALINE [Concomitant]
     Active Substance: SERTRALINE HYDROCHLORIDE
     Indication: DEPRESSED MOOD
     Dosage: UNK
  2. LETROZOLE. [Concomitant]
     Active Substance: LETROZOLE
     Indication: BREAST CANCER METASTATIC
     Dosage: UNK
  3. IBRANCE [Suspect]
     Active Substance: PALBOCICLIB
     Indication: BREAST CANCER METASTATIC
     Dosage: 1 DF

REACTIONS (9)
  - Depression [Unknown]
  - Gastrointestinal disorder [Unknown]
  - Basedow^s disease [Unknown]
  - Cataract [Recovered/Resolved]
  - Paraesthesia oral [Unknown]
  - Extra dose administered [Unknown]
  - Abdominal discomfort [Unknown]
  - Hunger [Unknown]
  - Mood altered [Unknown]
